FAERS Safety Report 19886726 (Version 1)
Quarter: 2021Q3

REPORT INFORMATION
  Report Type: Spontaneous
  Country: US (occurrence: US)
  Receive Date: 20210927
  Receipt Date: 20210927
  Transmission Date: 20211014
  Serious: No
  Sender: FDA-Public Use
  Company Number: US-BRISTOL-MYERS SQUIBB COMPANY-BMS-2021-093010

PATIENT
  Age: 31 Year
  Sex: Female
  Weight: 51.7 kg

DRUGS (2)
  1. KENALOG?10 [Suspect]
     Active Substance: TRIAMCINOLONE ACETONIDE
     Indication: PAIN IN EXTREMITY
  2. KENALOG?10 [Suspect]
     Active Substance: TRIAMCINOLONE ACETONIDE
     Indication: FOOT DEFORMITY
     Dosage: TWO DOSES GIVE ONCE, ONE IN EACH FOOT, WITH 0.5 CC IN EACH DOSE
     Route: 065
     Dates: start: 20210826

REACTIONS (12)
  - Anxiety [Unknown]
  - Fatigue [Unknown]
  - Palpitations [Unknown]
  - Bladder disorder [Unknown]
  - Feeling abnormal [Unknown]
  - Insomnia [Unknown]
  - Dysuria [Unknown]
  - Chest pain [Unknown]
  - Hypoaesthesia [Unknown]
  - Nervousness [Unknown]
  - Heart rate decreased [Unknown]
  - Hypotension [Unknown]

NARRATIVE: CASE EVENT DATE: 20210826
